FAERS Safety Report 5242439-0 (Version None)
Quarter: 2007Q1

REPORT INFORMATION
  Report Type: 
  Country: None (occurrence: None)
  Receive Date: 20070214
  Receipt Date: 20070130
  Transmission Date: 20070707
  Serious: Yes (Hospitalization)
  Sender: FDA-Public Use
  Company Number: MEDI-0005366

PATIENT
  Age: 13 Month
  Sex: Male

DRUGS (1)
  1. SYNAGIS [Suspect]
     Dosage: INTRAMUSCULAR
     Route: 030
     Dates: start: 20061105, end: 20061105

REACTIONS (8)
  - DRUG INEFFECTIVE [None]
  - FEBRILE CONVULSION [None]
  - OTITIS MEDIA [None]
  - PERITONSILLAR ABSCESS [None]
  - SINUSITIS [None]
  - TONSILLITIS [None]
  - UPPER RESPIRATORY TRACT INFECTION [None]
  - VIRAL INFECTION [None]
